FAERS Safety Report 11005019 (Version 1)
Quarter: 2015Q2

REPORT INFORMATION
  Report Type: Spontaneous
  Country: US (occurrence: None)
  Receive Date: 20150408
  Receipt Date: 20150408
  Transmission Date: 20150821
  Serious: Yes (Other)
  Sender: FDA-Public Use
  Company Number: None

PATIENT
  Age: 33 Year
  Sex: Female

DRUGS (2)
  1. AZITHROMYCIN [Suspect]
     Active Substance: AZITHROMYCIN ANHYDROUS
     Dates: start: 20131014, end: 20131024
  2. OXY-ELITE PRO [Suspect]
     Active Substance: DIETARY SUPPLEMENT
     Dates: start: 20130615, end: 20131030

REACTIONS (8)
  - Fatigue [None]
  - Ultrasound liver abnormal [None]
  - Alanine aminotransferase increased [None]
  - Drug-induced liver injury [None]
  - Malaise [None]
  - Nausea [None]
  - Aspartate aminotransferase increased [None]
  - Treatment noncompliance [None]

NARRATIVE: CASE EVENT DATE: 20131112
